FAERS Safety Report 23250889 (Version 1)
Quarter: 2023Q4

REPORT INFORMATION
  Report Type: Spontaneous
  Country: US (occurrence: None)
  Receive Date: 20231130
  Receipt Date: 20231130
  Transmission Date: 20240109
  Serious: Yes (Other)
  Sender: FDA-Public Use
  Company Number: None

PATIENT
  Age: 63 Year
  Sex: Male
  Weight: 72 kg

DRUGS (2)
  1. TYRVAYA [Suspect]
     Active Substance: VARENICLINE TARTRATE
     Dosage: FREQUENCY : DAILY;?OTHER ROUTE : NASAL SPRAY;?
     Route: 050
     Dates: start: 20231107, end: 20231129
  2. VITAMINS [Concomitant]
     Active Substance: VITAMINS

REACTIONS (5)
  - Eye swelling [None]
  - Eye pruritus [None]
  - Lacrimation increased [None]
  - Pain of skin [None]
  - Dry skin [None]

NARRATIVE: CASE EVENT DATE: 20231129
